FAERS Safety Report 12942341 (Version 1)
Quarter: 2016Q4

REPORT INFORMATION
  Report Type: Spontaneous
  Country: US (occurrence: US)
  Receive Date: 20161114
  Receipt Date: 20161114
  Transmission Date: 20170207
  Serious: No
  Sender: FDA-Public Use
  Company Number: US-PRESTIUM PHARMA-2015RN000100

PATIENT
  Age: 37 Year
  Sex: Female
  Weight: 65.76 kg

DRUGS (1)
  1. DENAVIR [Suspect]
     Active Substance: PENCICLOVIR
     Indication: ORAL HERPES
     Dosage: 1% CREAM, 5 GRAM TUBE, ON-AND-OFF FOR SEVEN YEARS
     Route: 061

REACTIONS (1)
  - Drug ineffective [Not Recovered/Not Resolved]
